FAERS Safety Report 17559476 (Version 1)
Quarter: 2020Q1

REPORT INFORMATION
  Report Type: Spontaneous
  Country: US (occurrence: US)
  Receive Date: 20200311
  Receipt Date: 20200311
  Transmission Date: 20200409
  Serious: Yes (Death)
  Sender: FDA-Public Use
  Company Number: None

PATIENT
  Age: 62 Year
  Sex: Male
  Weight: 95.3 kg

DRUGS (2)
  1. ASPIRIN/ACETAMINOPHEN/CAFFEINE 250-250-65MG TA [Suspect]
     Active Substance: ACETAMINOPHEN\ASPIRIN\CAFFEINE
     Dosage: ?          OTHER FREQUENCY:Q6HR PM;?
     Route: 048
  2. MELIOXICAM 15MG [Suspect]
     Active Substance: MELOXICAM
     Dosage: ?          OTHER FREQUENCY:QAM;?
     Route: 048

REACTIONS (5)
  - Syncope [None]
  - Haematemesis [None]
  - Duodenal ulcer [None]
  - Blood loss anaemia [None]
  - Upper gastrointestinal haemorrhage [None]

NARRATIVE: CASE EVENT DATE: 20200220
